FAERS Safety Report 7999632-3 (Version None)
Quarter: 2011Q4

REPORT INFORMATION
  Report Type: 
  Country: None (occurrence: None)
  Receive Date: 20111221
  Receipt Date: 20111214
  Transmission Date: 20120403
  Serious: Yes (Other)
  Sender: FDA-Public Use
  Company Number: CN-ASTRAZENECA-2011SE72625

PATIENT
  Age: 38 Year
  Sex: Male

DRUGS (1)
  1. PRILOSEC [Suspect]
     Indication: GASTRIC ULCER
     Route: 048
     Dates: start: 20111001, end: 20111101

REACTIONS (3)
  - NEUTROPHIL COUNT DECREASED [None]
  - DIZZINESS [None]
  - WHITE BLOOD CELL COUNT DECREASED [None]
